FAERS Safety Report 5818645-0 (Version None)
Quarter: 2008Q3

REPORT INFORMATION
  Report Type: 
  Country: None (occurrence: None)
  Receive Date: 20080717
  Receipt Date: 20080717
  Transmission Date: 20090109
  Serious: Yes (Disabling, Other)
  Sender: FDA-Public Use
  Company Number: None

PATIENT
  Sex: Male
  Weight: 72.5755 kg

DRUGS (2)
  1. EXELON [Suspect]
     Indication: DEMENTIA
     Dosage: 20MG
     Dates: start: 20070201
  2. EXELON [Suspect]
     Indication: DEMENTIA ALZHEIMER'S TYPE
     Dosage: 20MG
     Dates: start: 20070201

REACTIONS (3)
  - HALLUCINATION [None]
  - ILL-DEFINED DISORDER [None]
  - MOOD ALTERED [None]
